FAERS Safety Report 4737973-3 (Version None)
Quarter: 2005Q3

REPORT INFORMATION
  Report Type: 
  Country: None (occurrence: None)
  Receive Date: 20050809
  Receipt Date: 20050517
  Transmission Date: 20060218
  Serious: Yes (Other)
  Sender: FDA-Public Use
  Company Number: PHEH2005US05660

PATIENT
  Age: 74 Year
  Sex: Female

DRUGS (10)
  1. ZOMETA [Suspect]
     Indication: METASTASES TO BONE
     Dosage: 4 MG MONTHLY
     Dates: start: 20020925, end: 20041008
  2. AREDIA [Suspect]
     Indication: METASTASES TO BONE
     Dosage: 90 MG, QMO
     Dates: start: 19990507, end: 20020819
  3. COUMADIN [Concomitant]
     Indication: ANTICOAGULANT THERAPY
     Dosage: 2 MG, QD
  4. CLARITIN [Concomitant]
     Indication: HYPERSENSITIVITY
  5. ARIMIDEX [Concomitant]
     Indication: BREAST CANCER
  6. GLUCOSAMINE [Concomitant]
     Indication: DIABETES MELLITUS
     Dosage: 1000 UNK, UNK
  7. AVANDIA [Concomitant]
     Indication: DIABETES MELLITUS
     Dosage: 4 MG, UNK
  8. PROPRANOLOL [Concomitant]
  9. NORVASC [Concomitant]
     Indication: HYPERTENSION
     Dosage: 5 MG, UNK
  10. PROCRIT                            /00909301/ [Concomitant]
     Indication: ANAEMIA

REACTIONS (1)
  - ASEPTIC NECROSIS BONE [None]
